FAERS Safety Report 9276416 (Version 2)
Quarter: 2013Q2

REPORT INFORMATION
  Report Type: Report from Study
  Country: JP (occurrence: JP)
  Receive Date: 20130507
  Receipt Date: 20130603
  Transmission Date: 20140414
  Serious: Yes (Hospitalization, Disabling, Other)
  Sender: FDA-Public Use
  Company Number: JP-GLAXOSMITHKLINE-B0887466A

PATIENT
  Age: 73 Year
  Sex: Male

DRUGS (13)
  1. HUMIRA [Suspect]
     Indication: RHEUMATOID ARTHRITIS
     Route: 058
     Dates: start: 20100720
  2. DICLOFENAC [Suspect]
     Indication: RHEUMATOID ARTHRITIS
     Dosage: 37.5MG PER DAY
     Route: 065
     Dates: start: 20100720, end: 20120131
  3. VERAPAMIL HYDROCHLORIDE [Suspect]
     Indication: PRODUCT USED FOR UNKNOWN INDICATION
     Dosage: 80MG PER DAY
     Dates: start: 20100720
  4. OMEPRAZOLE [Suspect]
     Indication: PRODUCT USED FOR UNKNOWN INDICATION
     Dosage: 20MG PER DAY
     Dates: start: 20100720
  5. PROPAFENONE [Suspect]
     Indication: PRODUCT USED FOR UNKNOWN INDICATION
     Dosage: 200MG PER DAY
     Dates: start: 20100720, end: 201202
  6. TIZANIDINE HYDROCHLORIDE [Suspect]
     Indication: SPINAL OSTEOARTHRITIS
     Dosage: 2MG PER DAY
     Dates: start: 20100720
  7. BROTIZOLAM [Suspect]
     Indication: INSOMNIA
     Dosage: .25MG PER DAY
     Dates: start: 20100720
  8. LIMAPROST [Suspect]
     Indication: LUMBAR SPINAL STENOSIS
     Dosage: 10MCG PER DAY
     Dates: start: 20110201
  9. EXTRACT OF INFLAMMATORY RABBIT SKIN INOCULATED BY VACCINIA VIRUS [Suspect]
     Indication: CERVICOBRACHIAL SYNDROME
     Dates: start: 20111122
  10. TACROLIMUS HYDRATE [Suspect]
     Indication: RHEUMATOID ARTHRITIS
     Dosage: 1MG PER DAY
     Dates: start: 20101207, end: 20111107
  11. EPINASTINE HYDROCHLORIDE [Suspect]
     Indication: ALLERGY PROPHYLAXIS
     Dosage: 20MG PER DAY
     Dates: start: 20100720, end: 20110523
  12. UNSPECIFIED INGREDIENT [Suspect]
     Indication: MUSCLE SPASMS
     Dosage: 2.5G PER DAY
     Dates: start: 20110524, end: 201108
  13. PREGABALIN [Suspect]
     Indication: SCIATICA
     Dosage: 50MG PER DAY
     Dates: start: 20110903, end: 20111121

REACTIONS (7)
  - Nephrotic syndrome [Not Recovered/Not Resolved]
  - Pleural effusion [Unknown]
  - Renal failure chronic [Not Recovered/Not Resolved]
  - Brain natriuretic peptide abnormal [Unknown]
  - Proteinuria [Unknown]
  - Influenza [Recovered/Resolved]
  - Dialysis [None]
